FAERS Safety Report 4381518-7 (Version None)
Quarter: 2004Q2

REPORT INFORMATION
  Report Type: 
  Country: None (occurrence: None)
  Receive Date: 20040616
  Receipt Date: 20040605
  Transmission Date: 20050107
  Serious: Yes (Hospitalization, Other)
  Sender: FDA-Public Use
  Company Number: 2004023218

PATIENT
  Age: 58 Year
  Sex: Female
  Weight: 95.2554 kg

DRUGS (10)
  1. TIKOSYN [Suspect]
     Indication: ATRIAL FIBRILLATION
     Dosage: 250 MCG (BID), ORAL
     Route: 048
     Dates: start: 20031001
  2. DIGOXIN [Concomitant]
  3. WARFARIN SODIUM [Concomitant]
  4. SPIRONOLACTONE [Concomitant]
  5. PRAVASTATIN SODIUM [Concomitant]
  6. INSULIN HUMAN INJECTION, ISOPHANE (INSULIN HUMAN INJECTION, ISOPHANE) [Concomitant]
  7. INSULIN HUMAN (INSULIN HUMAN) [Concomitant]
  8. POTASSIUM (POTASSIUM) [Concomitant]
  9. FAMOTIDINE [Concomitant]
  10. INSULIN LISPRO (INSULIN LISPRO) [Concomitant]

REACTIONS (4)
  - FLUID RETENTION [None]
  - INCISION SITE COMPLICATION [None]
  - INFECTION [None]
  - SINUSITIS [None]
